FAERS Safety Report 4475809-9 (Version None)
Quarter: 2004Q3

REPORT INFORMATION
  Report Type: 
  Country: None (occurrence: None)
  Receive Date: 20040923
  Receipt Date: 20040709
  Transmission Date: 20050211
  Serious: No
  Sender: FDA-Public Use
  Company Number: USA040772142

PATIENT
  Age: 88 Year
  Sex: Female
  Weight: 73 kg

DRUGS (3)
  1. FORTEO [Suspect]
     Indication: BONE DENSITY DECREASED
     Dosage: 20 UG 1 DAY
     Dates: start: 20040401
  2. EVISTA [Suspect]
     Dates: start: 20030601, end: 20030801
  3. LIPITOR [Concomitant]

REACTIONS (5)
  - ARTHROPATHY [None]
  - CONSTIPATION [None]
  - GASTRIC DISORDER [None]
  - INJECTION SITE HAEMORRHAGE [None]
  - INJECTION SITE PAIN [None]
